FAERS Safety Report 8621323 (Version 2)
Quarter: 2013Q3

REPORT INFORMATION
  Report Type: Report from Study
  Country: MX (occurrence: MX)
  Receive Date: 20120619
  Receipt Date: 20130819
  Transmission Date: 20140515
  Serious: Yes (Hospitalization, Other)
  Sender: FDA-Public Use
  Company Number: PHHY2012MX051639

PATIENT
  Age: 81 Year
  Sex: Female

DRUGS (3)
  1. EXFORGE HCT [Suspect]
     Indication: HYPERTENSION
     Dosage: 1 DF (VALS 160 MG, AMLO 05 MG, HYDR 12.5 MG), DAILY
     Dates: start: 201201, end: 20120524
  2. BI-EUGLUCON M [Concomitant]
     Indication: DIABETES MELLITUS
     Dosage: 3.5 DF, DAILY
     Dates: start: 2002
  3. GALVUS [Concomitant]
     Indication: DIABETES MELLITUS
     Dosage: 3 DF, DAILY
     Dates: start: 2008

REACTIONS (3)
  - Gastrooesophageal reflux disease [Recovered/Resolved]
  - Local swelling [Recovered/Resolved]
  - Blood pressure inadequately controlled [Recovered/Resolved]
